FAERS Safety Report 8284344-1 (Version None)
Quarter: 2012Q2

REPORT INFORMATION
  Report Type: 
  Country: None (occurrence: None)
  Receive Date: 20120413
  Receipt Date: 20110323
  Transmission Date: 20120825
  Serious: No
  Sender: FDA-Public Use
  Company Number: US-ASTRAZENECA-2011SE17025

PATIENT
  Age: 61 Year
  Sex: Female

DRUGS (1)
  1. NEXIUM [Suspect]
     Route: 048

REACTIONS (4)
  - SINUSITIS [None]
  - VIRAL INFECTION [None]
  - HELICOBACTER GASTRITIS [None]
  - ENDOSCOPY [None]
